FAERS Safety Report 20434295 (Version 1)
Quarter: 2022Q1

REPORT INFORMATION
  Report Type: Spontaneous
  Country: FR (occurrence: FR)
  Receive Date: 20220206
  Receipt Date: 20220206
  Transmission Date: 20220423
  Serious: Yes (Other)
  Sender: FDA-Public Use
  Company Number: None

PATIENT
  Age: 25 Year
  Sex: Female

DRUGS (2)
  1. METHYLPHENIDATE HYDROCHLORIDE [Suspect]
     Active Substance: METHYLPHENIDATE HYDROCHLORIDE
     Indication: Hypersomnia
     Dosage: 30 MG (30MG LP)
     Route: 048
     Dates: start: 20220107
  2. METHYLPHENIDATE HYDROCHLORIDE [Suspect]
     Active Substance: METHYLPHENIDATE HYDROCHLORIDE
     Dosage: 10 MG
     Route: 048
     Dates: start: 20220107

REACTIONS (6)
  - Ocular hyperaemia [Recovered/Resolved]
  - Malaise [Recovered/Resolved]
  - Wrong schedule [Recovered/Resolved]
  - Palpitations [Recovering/Resolving]
  - Chest pain [Recovering/Resolving]
  - Tremor [Recovered/Resolved]

NARRATIVE: CASE EVENT DATE: 20220107
